FAERS Safety Report 20898273 (Version 2)
Quarter: 2022Q3

REPORT INFORMATION
  Report Type: Report from Study
  Country: US (occurrence: None)
  Receive Date: 20220531
  Receipt Date: 20220713
  Transmission Date: 20221026
  Serious: Yes (Hospitalization, Other)
  Sender: FDA-Public Use
  Company Number: 2022A198748

PATIENT
  Age: 73 Year
  Sex: Female
  Weight: 41.3 kg

DRUGS (11)
  1. LYNPARZA [Suspect]
     Active Substance: OLAPARIB
     Indication: Uterine cancer
     Route: 048
     Dates: start: 202009, end: 202104
  2. LYNPARZA [Suspect]
     Active Substance: OLAPARIB
     Indication: Neoplasm malignant
     Route: 048
     Dates: start: 202009, end: 202104
  3. LYNPARZA [Suspect]
     Active Substance: OLAPARIB
     Indication: Uterine cancer
     Route: 048
  4. LYNPARZA [Suspect]
     Active Substance: OLAPARIB
     Indication: Neoplasm malignant
     Route: 048
  5. LYNPARZA [Suspect]
     Active Substance: OLAPARIB
     Indication: Uterine cancer
     Dosage: 250.0MG UNKNOWN
     Route: 048
     Dates: start: 20201027, end: 20210715
  6. LYNPARZA [Suspect]
     Active Substance: OLAPARIB
     Indication: Neoplasm malignant
     Dosage: 250.0MG UNKNOWN
     Route: 048
     Dates: start: 20201027, end: 20210715
  7. DOXYCYCLINE [Concomitant]
     Active Substance: DOXYCYCLINE
  8. ERYTHROMYCIN [Concomitant]
     Active Substance: ERYTHROMYCIN
  9. ARAVA [Concomitant]
     Active Substance: LEFLUNOMIDE
  10. MAEROBIOL [Concomitant]
  11. TAXOL [Concomitant]
     Active Substance: PACLITAXEL

REACTIONS (15)
  - Malignant peritoneal neoplasm [Unknown]
  - Blood sodium decreased [Unknown]
  - Swelling [Unknown]
  - Erythema [Unknown]
  - Dyspnoea [Unknown]
  - Asthenia [Unknown]
  - Lung disorder [Unknown]
  - Neuropathy peripheral [Unknown]
  - Oesophagitis [Unknown]
  - Gastrooesophageal reflux disease [Unknown]
  - Weight decreased [Unknown]
  - Platelet count decreased [Unknown]
  - Hyponatraemia [Recovered/Resolved]
  - Neutropenia [Recovered/Resolved]
  - Anaemia macrocytic [Recovered/Resolved]

NARRATIVE: CASE EVENT DATE: 20200605
